FAERS Safety Report 8939983 (Version 1)
Quarter: 2012Q4

REPORT INFORMATION
  Report Type: 
  Country: US (occurrence: US)
  Receive Date: 20121130
  Receipt Date: 20121130
  Transmission Date: 20130627
  Serious: Yes (Life-Threatening, Hospitalization, Other)
  Sender: FDA-Public Use
  Company Number: US-ABBOTT-12P-163-1013376-00

PATIENT
  Sex: Male

DRUGS (11)
  1. ANDROGEL [Suspect]
     Indication: ANDROGEN DEFICIENCY
     Dates: start: 20111115
  2. ANDROGEL [Suspect]
     Indication: ANDROGEN DEFICIENCY
     Dates: start: 20120313, end: 201207
  3. LUNESTA [Concomitant]
  4. ALDACTAZIDE [Concomitant]
     Dosage: 50-50MG
  5. PHENDIMETRAZINE [Concomitant]
  6. SPIRONOLACTONE [Concomitant]
  7. LEVITRA [Concomitant]
  8. AZITHROMYCIN [Concomitant]
     Dates: start: 20120330
  9. BUPROPION HCL ER [Concomitant]
     Dates: start: 20120602
  10. BUPROPION HCL ER [Concomitant]
     Dates: start: 20120602
  11. CYCLOBENZAPRINE [Concomitant]
     Dates: start: 20120705

REACTIONS (3)
  - Pulmonary embolism [Recovering/Resolving]
  - Deep vein thrombosis [Recovering/Resolving]
  - Rotator cuff syndrome [Unknown]
